FAERS Safety Report 4350051-0 (Version None)
Quarter: 2004Q2

REPORT INFORMATION
  Report Type: 
  Country: None (occurrence: None)
  Receive Date: 20040429
  Receipt Date: 20040419
  Transmission Date: 20050107
  Serious: Yes (Other)
  Sender: FDA-Public Use
  Company Number: PHFR2004GB01839

PATIENT
  Sex: Female

DRUGS (1)
  1. VOLTAREN-XR [Suspect]
     Indication: ARTHRITIS
     Dosage: 75 MG, QD

REACTIONS (3)
  - DYSKINESIA [None]
  - DYSPNOEA [None]
  - PRURITUS GENERALISED [None]
